FAERS Safety Report 12308253 (Version 3)
Quarter: 2016Q4

REPORT INFORMATION
  Report Type: Spontaneous
  Country: US (occurrence: US)
  Receive Date: 20160426
  Receipt Date: 20161204
  Transmission Date: 20170207
  Serious: No
  Sender: FDA-Public Use
  Company Number: US-ASTRAZENECA-2016SE32808

PATIENT
  Age: 20794 Day
  Sex: Female
  Weight: 142.9 kg

DRUGS (6)
  1. NAPROXEN. [Concomitant]
     Active Substance: NAPROXEN
  2. TUDORZA PRESSAIR [Suspect]
     Active Substance: ACLIDINIUM BROMIDE
     Indication: CHRONIC OBSTRUCTIVE PULMONARY DISEASE
     Dosage: 400 UG,TWO TIMES A DAY, 1 PUFF IN THE MORNING AND 1 PUFF TIN THE EVENING
     Route: 055
     Dates: start: 20160313
  3. METACARBONE [Concomitant]
  4. LYRICA [Concomitant]
     Active Substance: PREGABALIN
  5. NORCO [Concomitant]
     Active Substance: ACETAMINOPHEN\HYDROCODONE BITARTRATE
  6. TRAZODONE [Concomitant]
     Active Substance: TRAZODONE HYDROCHLORIDE

REACTIONS (11)
  - Insomnia [Unknown]
  - Dysphonia [Unknown]
  - Visual impairment [Unknown]
  - Near drowning [Unknown]
  - Gait disturbance [Unknown]
  - Dyspnoea [Unknown]
  - Increased bronchial secretion [Unknown]
  - Secretion discharge [Unknown]
  - Intentional product misuse [Unknown]
  - Drug dose omission [Recovered/Resolved]
  - Device issue [Unknown]

NARRATIVE: CASE EVENT DATE: 20160318
